FAERS Safety Report 10227908 (Version 2)
Quarter: 2014Q2

REPORT INFORMATION
  Report Type: Spontaneous
  Country: FR (occurrence: FR)
  Receive Date: 20140610
  Receipt Date: 20140623
  Transmission Date: 20141212
  Serious: Yes (Other)
  Sender: FDA-Public Use
  Company Number: FR-DSJP-DSE-2014-110650

PATIENT
  Sex: 0

DRUGS (2)
  1. COOLMETEC 40 MG/ 25 MG [Suspect]
     Indication: HYPERTENSION
     Dosage: 40/25 MG, QD
     Route: 048
     Dates: end: 2013
  2. COOLMETEC 40 MG/ 25 MG [Suspect]
     Dosage: 40/25 MG, QD
     Route: 048
     Dates: start: 20130625, end: 20140410

REACTIONS (2)
  - Diarrhoea [Recovered/Resolved]
  - Diarrhoea haemorrhagic [Recovered/Resolved]
